FAERS Safety Report 23084876 (Version 1)
Quarter: 2023Q4

REPORT INFORMATION
  Report Type: Spontaneous
  Country: GB (occurrence: GB)
  Receive Date: 20231019
  Receipt Date: 20231019
  Transmission Date: 20240110
  Serious: Yes (Other)
  Sender: FDA-Public Use
  Company Number: GB-MHRA-MED-202310021708447280-NHDFJ

PATIENT
  Age: 49 Year
  Sex: Female

DRUGS (1)
  1. ATORVASTATIN [Suspect]
     Active Substance: ATORVASTATIN
     Indication: Product used for unknown indication
     Dosage: 10 MILLIGRAM, DAILY, WAS DECREASED BACK TO 10MG STRENGTH FROM 80MG
     Route: 065

REACTIONS (2)
  - Medication error [Unknown]
  - Myositis [Recovered/Resolved]

NARRATIVE: CASE EVENT DATE: 20230723
